FAERS Safety Report 11495756 (Version 2)
Quarter: 2015Q4

REPORT INFORMATION
  Report Type: Spontaneous
  Country: US (occurrence: US)
  Receive Date: 20150911
  Receipt Date: 20151009
  Transmission Date: 20160304
  Serious: No
  Sender: FDA-Public Use
  Company Number: US-PFIZER INC-2015290356

PATIENT
  Age: 57 Year
  Sex: Female
  Weight: 56 kg

DRUGS (1)
  1. IBRANCE [Suspect]
     Active Substance: PALBOCICLIB
     Indication: BREAST CANCER STAGE IV
     Dosage: 100 MG, CYCLIC  (DAY 1-21 Q 28DAYS)
     Route: 048
     Dates: start: 20150629

REACTIONS (3)
  - Tumour marker increased [Unknown]
  - Malaise [Recovered/Resolved]
  - White blood cell disorder [Recovered/Resolved]
